FAERS Safety Report 18765285 (Version 5)
Quarter: 2021Q2

REPORT INFORMATION
  Report Type: Spontaneous
  Country: JP (occurrence: JP)
  Receive Date: 20210121
  Receipt Date: 20210521
  Transmission Date: 20210717
  Serious: Yes (Other)
  Sender: FDA-Public Use
  Company Number: JP-AUROBINDO-AUR-APL-2021-002726

PATIENT
  Age: 80 Year
  Sex: Male

DRUGS (14)
  1. FOLOTYN [Suspect]
     Active Substance: PRALATREXATE
     Dosage: UNK
     Route: 042
     Dates: start: 201907
  2. MOGAMULIZUMAB [Concomitant]
     Active Substance: MOGAMULIZUMAB
     Dosage: UNK
     Route: 065
     Dates: start: 201904, end: 201904
  3. FOLOTYN [Suspect]
     Active Substance: PRALATREXATE
     Dosage: UNK
     Route: 042
     Dates: start: 20190420, end: 20190420
  4. MUNDESINE [Suspect]
     Active Substance: FORODESINE HYDROCHLORIDE
     Indication: ANGIOIMMUNOBLASTIC T-CELL LYMPHOMA STAGE IV
     Dosage: 400 MILLIGRAM, DAILY
     Route: 048
     Dates: start: 201805, end: 201905
  5. MOGAMULIZUMAB [Concomitant]
     Active Substance: MOGAMULIZUMAB
     Indication: PRODUCT USED FOR UNKNOWN INDICATION
     Dosage: UNK
     Route: 065
     Dates: start: 2018, end: 2018
  6. FOLOTYN [Suspect]
     Active Substance: PRALATREXATE
     Dosage: UNK
     Route: 042
     Dates: start: 201907, end: 201907
  7. FOLOTYN [Suspect]
     Active Substance: PRALATREXATE
     Indication: ANGIOIMMUNOBLASTIC T-CELL LYMPHOMA STAGE IV
     Dosage: UNK
     Route: 042
     Dates: start: 201905, end: 201905
  8. MUNDESINE [Suspect]
     Active Substance: FORODESINE HYDROCHLORIDE
     Dosage: 400 MILLIGRAM, DAILY
     Route: 048
     Dates: start: 20180416, end: 20190324
  9. MOGAMULIZUMAB [Concomitant]
     Active Substance: MOGAMULIZUMAB
     Dosage: UNK
     Route: 065
     Dates: start: 201902, end: 201903
  10. FOLOTYN [Suspect]
     Active Substance: PRALATREXATE
     Dosage: UNK
     Route: 042
     Dates: start: 20190624, end: 20190624
  11. FOLOTYN [Suspect]
     Active Substance: PRALATREXATE
     Dosage: UNK
     Route: 042
     Dates: start: 20190415, end: 20190415
  12. ROMIDEPSIN. [Concomitant]
     Active Substance: ROMIDEPSIN
     Indication: PRODUCT USED FOR UNKNOWN INDICATION
     Dosage: UNK
     Route: 065
     Dates: start: 201903
  13. MOGAMULIZUMAB [Concomitant]
     Active Substance: MOGAMULIZUMAB
     Dosage: UNK
     Route: 065
     Dates: start: 201907
  14. DEXAMETHASONE. [Concomitant]
     Active Substance: DEXAMETHASONE
     Indication: PRODUCT USED FOR UNKNOWN INDICATION
     Dosage: 1?2 MG, DAILY
     Route: 065
     Dates: start: 2018

REACTIONS (2)
  - Pneumonia [Unknown]
  - Lymphopenia [Not Recovered/Not Resolved]

NARRATIVE: CASE EVENT DATE: 20180507
